FAERS Safety Report 13375424 (Version 4)
Quarter: 2017Q4

REPORT INFORMATION
  Report Type: Spontaneous
  Country: US (occurrence: US)
  Receive Date: 20170327
  Receipt Date: 20171127
  Transmission Date: 20180320
  Serious: No
  Sender: FDA-Public Use
  Company Number: US-BRISTOL-MYERS SQUIBB COMPANY-BMS-2017-025493

PATIENT
  Sex: Female

DRUGS (1)
  1. BARACLUDE [Suspect]
     Active Substance: ENTECAVIR
     Indication: ACUTE HEPATITIS B
     Dosage: 1 MG, QD
     Route: 048
     Dates: start: 201702

REACTIONS (3)
  - Product use in unapproved indication [Unknown]
  - Drug dose omission [Unknown]
  - Memory impairment [Unknown]
